FAERS Safety Report 8393219-9 (Version None)
Quarter: 2012Q2

REPORT INFORMATION
  Report Type: 
  Country: None (occurrence: None)
  Receive Date: 20120529
  Receipt Date: 20120515
  Transmission Date: 20120825
  Serious: No
  Sender: FDA-Public Use
  Company Number: US-ABBOTT-12P-163-0935247-00

PATIENT
  Sex: Male

DRUGS (5)
  1. BUPROPION HCL [Concomitant]
     Indication: DEPRESSION
  2. ANDROGEL [Suspect]
     Indication: BLOOD TESTOSTERONE DECREASED
     Dosage: 2 PUMP PRESSES
     Route: 061
     Dates: start: 20120201, end: 20120301
  3. ANDROGEL [Suspect]
     Dosage: 3 PUMP PRESSES
     Route: 061
     Dates: start: 20120301, end: 20120401
  4. MULTI-VITAMIN [Concomitant]
     Indication: VITAMIN SUPPLEMENTATION
  5. ANDROGEL [Suspect]
     Dosage: 4 PUMP PRESSES
     Route: 061
     Dates: start: 20120401

REACTIONS (4)
  - FEELING ABNORMAL [None]
  - BLOOD TESTOSTERONE DECREASED [None]
  - LIBIDO INCREASED [None]
  - ELEVATED MOOD [None]
